FAERS Safety Report 21565182 (Version 3)
Quarter: 2025Q1

REPORT INFORMATION
  Report Type: Report from Study
  Country: US (occurrence: US)
  Receive Date: 20221108
  Receipt Date: 20250204
  Transmission Date: 20250408
  Serious: Yes (Other)
  Sender: ABBVIE
  Company Number: US-ABBVIE-4189103

PATIENT
  Age: 64 Year
  Sex: Female

DRUGS (2)
  1. HUMIRA [Suspect]
     Active Substance: ADALIMUMAB
     Indication: Rheumatoid arthritis
     Route: 058
  2. HUMIRA [Suspect]
     Active Substance: ADALIMUMAB
     Route: 058
     Dates: end: 202411

REACTIONS (14)
  - Spinal fusion surgery [Unknown]
  - Thyroid function test abnormal [Unknown]
  - Bursitis [Unknown]
  - Pain [Recovered/Resolved]
  - Nerve block [Unknown]
  - Hepatic enzyme increased [Unknown]
  - Renal function test abnormal [Unknown]
  - Hepatic steatosis [Unknown]
  - Spinal operation [Unknown]
  - Device placement issue [Unknown]
  - Device placement issue [Unknown]
  - Arthralgia [Unknown]
  - Sciatica [Unknown]
  - Fall [Unknown]

NARRATIVE: CASE EVENT DATE: 20220224
